FAERS Safety Report 4654291-2 (Version None)
Quarter: 2005Q2

REPORT INFORMATION
  Report Type: 
  Country: None (occurrence: None)
  Receive Date: 20050404
  Receipt Date: 20041207
  Transmission Date: 20051028
  Serious: No
  Sender: FDA-Public Use
  Company Number: USA041285734

PATIENT
  Age: 26 Year
  Sex: Female

DRUGS (2)
  1. CYMBALTA [Suspect]
     Dosage: 60 MG
     Dates: start: 20041101, end: 20041206
  2. WELLBUTRIN [Concomitant]

REACTIONS (2)
  - ANORGASMIA [None]
  - MOOD ALTERED [None]
